FAERS Safety Report 9296830 (Version 1)
Quarter: 2013Q2

REPORT INFORMATION
  Report Type: Spontaneous
  Country: JP (occurrence: JP)
  Receive Date: 20130517
  Receipt Date: 20130517
  Transmission Date: 20140414
  Serious: Yes (Death, Life-Threatening, Hospitalization)
  Sender: FDA-Public Use
  Company Number: JP-ROXANE LABORATORIES, INC.-2013-RO-00779RO

PATIENT
  Age: 77 Year
  Sex: Male

DRUGS (2)
  1. CLOPIDOGREL [Suspect]
     Indication: ANGINA UNSTABLE
     Dosage: 75 MG
     Route: 048
     Dates: start: 201105
  2. ANTIHYPERTENSIVES [Concomitant]
     Indication: HYPERTENSION
     Route: 048

REACTIONS (6)
  - Sepsis [Fatal]
  - Peritonitis [Fatal]
  - Small intestinal perforation [Fatal]
  - Thrombotic thrombocytopenic purpura [Unknown]
  - Pneumonia staphylococcal [Unknown]
  - Ascites [Unknown]
